FAERS Safety Report 5815241-6 (Version None)
Quarter: 2008Q3

REPORT INFORMATION
  Report Type: 
  Country: None (occurrence: None)
  Receive Date: 20080718
  Receipt Date: 20080625
  Transmission Date: 20090109
  Serious: No
  Sender: FDA-Public Use
  Company Number: US-BOEHRINGER INGELHEIM GMBH, GERMANY-2008-BP-09847BP

PATIENT
  Age: 47 Year
  Sex: Female

DRUGS (2)
  1. MIRAPEX [Suspect]
     Indication: RESTLESS LEGS SYNDROME
     Dates: end: 20080508
  2. LEXAPRO [Concomitant]
     Dates: start: 20050224

REACTIONS (1)
  - PATHOLOGICAL GAMBLING [None]
